FAERS Safety Report 10739915 (Version 1)
Quarter: 2015Q1

REPORT INFORMATION
  Report Type: Report from Study
  Country: FR (occurrence: FR)
  Receive Date: 20150127
  Receipt Date: 20150127
  Transmission Date: 20150721
  Serious: Yes (Hospitalization, Other)
  Sender: FDA-Public Use
  Company Number: FR-ROCHE-1160653

PATIENT
  Age: 58 Year
  Sex: Male

DRUGS (11)
  1. PERFALGAN [Concomitant]
     Active Substance: ACETAMINOPHEN
  2. MOPRAL [Concomitant]
     Active Substance: OMEPRAZOLE SODIUM
  3. RITUXIMAB [Suspect]
     Active Substance: RITUXIMAB
     Indication: RHEUMATOID ARTHRITIS
     Dosage: DAY 1.
     Route: 042
     Dates: start: 20030828
  4. RITUXIMAB [Suspect]
     Active Substance: RITUXIMAB
     Dosage: DAY 1.
     Route: 042
     Dates: start: 20060105
  5. RITUXIMAB [Suspect]
     Active Substance: RITUXIMAB
     Dosage: DAY 15.
     Route: 042
     Dates: start: 20030911
  6. RITUXIMAB [Suspect]
     Active Substance: RITUXIMAB
     Dosage: DAY 15.
     Route: 042
     Dates: start: 20060119
  7. FOSAMAX [Concomitant]
     Active Substance: ALENDRONATE SODIUM
  8. CORTANCYL [Concomitant]
     Active Substance: PREDNISONE
     Route: 065
  9. LEVONOX (LEVOFLOXACIN) [Concomitant]
     Active Substance: LEVOFLOXACIN
  10. CONTRAMAL [Concomitant]
     Active Substance: TRAMADOL HYDROCHLORIDE
  11. CORTANCYL [Concomitant]
     Active Substance: PREDNISONE
     Route: 065

REACTIONS (9)
  - Pleurisy [Recovered/Resolved]
  - Embolism [Not Recovered/Not Resolved]
  - Post procedural sepsis [Recovered/Resolved]
  - Deep vein thrombosis [Recovered/Resolved]
  - Pulmonary sepsis [Recovered/Resolved]
  - Meningitis [Not Recovered/Not Resolved]
  - Episcleritis [Not Recovered/Not Resolved]
  - Osteitis [Recovered/Resolved with Sequelae]
  - Arthrodesis [Recovered/Resolved with Sequelae]

NARRATIVE: CASE EVENT DATE: 20051031
